FAERS Safety Report 8047266-7 (Version None)
Quarter: 2012Q1

REPORT INFORMATION
  Report Type: 
  Country: None (occurrence: None)
  Receive Date: 20120116
  Receipt Date: 20120104
  Transmission Date: 20120608
  Serious: Yes (Death)
  Sender: FDA-Public Use
  Company Number: GB-ELI_LILLY_AND_COMPANY-GB201110003910

PATIENT
  Sex: Female

DRUGS (3)
  1. FORTEO [Suspect]
     Indication: OSTEOPOROSIS
     Dosage: 20 UG, QD
     Route: 058
     Dates: start: 20110901
  2. FORTEO [Suspect]
     Dosage: 20 UG, QD
     Route: 058
  3. ALBUTEROL SULFATE AUTOHALER [Concomitant]

REACTIONS (5)
  - NAUSEA [None]
  - DEATH [None]
  - MALAISE [None]
  - DECREASED APPETITE [None]
  - LOWER RESPIRATORY TRACT INFECTION [None]
